FAERS Safety Report 24465170 (Version 1)
Quarter: 2024Q4

REPORT INFORMATION
  Report Type: Report from Study
  Country: US (occurrence: US)
  Receive Date: 20241018
  Receipt Date: 20241018
  Transmission Date: 20250115
  Serious: No
  Sender: ROCHE
  Company Number: US-ROCHE-3514133

PATIENT
  Age: 36 Year
  Sex: Female

DRUGS (24)
  1. XOLAIR [Suspect]
     Active Substance: OMALIZUMAB
     Indication: Urticaria
     Dosage: STRENGTH: 150MG/ML
     Route: 058
  2. XOLAIR [Suspect]
     Active Substance: OMALIZUMAB
  3. ALBUTEROL [Concomitant]
     Active Substance: ALBUTEROL
  4. AMITRIPTYLINE [Concomitant]
     Active Substance: AMITRIPTYLINE
  5. ATORVASTATIN [Concomitant]
     Active Substance: ATORVASTATIN
  6. BUPROPION [Concomitant]
     Active Substance: BUPROPION
  7. ACETAMINOPHEN [Concomitant]
     Active Substance: ACETAMINOPHEN
  8. CHOLECALCIFEROL [Concomitant]
     Active Substance: CHOLECALCIFEROL
  9. CLINDAMYCIN [Concomitant]
     Active Substance: CLINDAMYCIN
  10. DOXYCYCLINE [Concomitant]
     Active Substance: DOXYCYCLINE
  11. DULOXETINE [Concomitant]
     Active Substance: DULOXETINE
  12. EPINEPHRINE [Concomitant]
     Active Substance: EPINEPHRINE
  13. FAMOTIDINE [Concomitant]
     Active Substance: FAMOTIDINE
  14. GLIPIZIDE [Concomitant]
     Active Substance: GLIPIZIDE
  15. HYOSCYAMINE [Concomitant]
     Active Substance: HYOSCYAMINE
  16. LISINOPRIL [Concomitant]
     Active Substance: LISINOPRIL
  17. LORATADINE [Concomitant]
     Active Substance: LORATADINE
  18. LORAZEPAM [Concomitant]
     Active Substance: LORAZEPAM
  19. METHOCARBAMOL [Concomitant]
     Active Substance: METHOCARBAMOL
  20. MONTELUKAST [Concomitant]
     Active Substance: MONTELUKAST
  21. PANTOPRAZOLE [Concomitant]
     Active Substance: PANTOPRAZOLE
  22. PREDNISONE [Concomitant]
     Active Substance: PREDNISONE
  23. ROPINIROLE [Concomitant]
     Active Substance: ROPINIROLE
  24. TRIAMCINOLONE ACETONIDE [Concomitant]
     Active Substance: TRIAMCINOLONE ACETONIDE

REACTIONS (2)
  - Off label use [Unknown]
  - No adverse event [Unknown]
